FAERS Safety Report 7538389-7 (Version None)
Quarter: 2011Q2

REPORT INFORMATION
  Report Type: 
  Country: None (occurrence: None)
  Receive Date: 20110609
  Receipt Date: 20110531
  Transmission Date: 20111010
  Serious: Yes (Hospitalization, Other)
  Sender: FDA-Public Use
  Company Number: BR-ASTRAZENECA-2010SE50492

PATIENT
  Age: 10 Year
  Sex: Male

DRUGS (2)
  1. SYMBICORT [Suspect]
     Indication: ASTHMA
     Dosage: 160/4.5 MCG DAILY
     Route: 055
     Dates: start: 20100901
  2. PREDNISOLONE [Concomitant]
     Indication: HYPERSENSITIVITY
     Route: 048
     Dates: start: 20100501, end: 20101018

REACTIONS (5)
  - DYSPNOEA [None]
  - ASTHMA [None]
  - EYE SWELLING [None]
  - HYPERSENSITIVITY [None]
  - NASAL INFLAMMATION [None]
